FAERS Safety Report 9004701 (Version 2)
Quarter: 2013Q2

REPORT INFORMATION
  Report Type: Spontaneous
  Country: US (occurrence: None)
  Receive Date: 20120508
  Receipt Date: 20121107
  Transmission Date: 20140414
  Serious: Yes (Other)
  Sender: FDA-Public Use
  Company Number: 2012HGS-003233

PATIENT
  Age: 41 Year
  Sex: Female
  Weight: 91.17 kg

DRUGS (1)
  1. BENLYSTA [Suspect]
     Indication: SYSTEMIC LUPUS ERYTHEMATOSUS
     Dosage: 1 IN 28 D, INTRAVENOUS DRIP
     Dates: start: 20120119

REACTIONS (4)
  - Convulsion [None]
  - Psychogenic seizure [None]
  - Tremor [None]
  - Eye movement disorder [None]
